FAERS Safety Report 16196336 (Version 2)
Quarter: 2019Q2

REPORT INFORMATION
  Report Type: Spontaneous
  Country: BE (occurrence: BE)
  Receive Date: 20190415
  Receipt Date: 20190430
  Transmission Date: 20190711
  Serious: Yes (Other)
  Sender: FDA-Public Use
  Company Number: BE-SA-2019SA103078

PATIENT

DRUGS (1)
  1. LEMTRADA [Suspect]
     Active Substance: ALEMTUZUMAB
     Route: 041

REACTIONS (9)
  - Incorrect dose administered [Unknown]
  - Gastroenteritis [Unknown]
  - Malaise [Unknown]
  - Wrong technique in product usage process [Unknown]
  - Bronchitis [Unknown]
  - Influenza [Unknown]
  - Inappropriate schedule of product administration [Unknown]
  - Infection [Unknown]
  - Pulmonary oedema [Unknown]
